FAERS Safety Report 5154963-X (Version None)
Quarter: 2006Q4

REPORT INFORMATION
  Report Type: 
  Country: None (occurrence: None)
  Receive Date: 20061121
  Receipt Date: 20061102
  Transmission Date: 20070319
  Serious: Yes (Death, Hospitalization, Other)
  Sender: FDA-Public Use
  Company Number: US-ELI_LILLY_AND_COMPANY-US200611000440

PATIENT
  Age: 50 Year
  Sex: Male
  Weight: 50.249 kg

DRUGS (6)
  1. VITAMIN B-12 [Concomitant]
     Dosage: 1000 UG, UNK
     Route: 030
     Dates: start: 20060908
  2. FOLIC ACID [Concomitant]
     Dosage: 400 UG, UNK
     Route: 048
     Dates: start: 20060908
  3. CORTICOSTEROID NOS [Concomitant]
     Dosage: 4 MG, OTHER
     Route: 048
     Dates: start: 20060908
  4. PLATINOL                                /CAN/ [Concomitant]
     Indication: LUNG SQUAMOUS CELL CARCINOMA STAGE IV
     Dosage: 50 MG, WEEKLY (1/W)
     Dates: start: 20051214
  5. ALIMTA [Suspect]
     Indication: LUNG SQUAMOUS CELL CARCINOMA STAGE IV
     Dosage: 835 MG, UNK
     Route: 042
     Dates: start: 20060908
  6. ALIMTA [Suspect]
     Route: 042
     Dates: start: 20061010

REACTIONS (4)
  - HAEMOGLOBIN DECREASED [None]
  - LEUKOPENIA [None]
  - MALIGNANT NEOPLASM PROGRESSION [None]
  - NEUTROPENIA [None]
